FAERS Safety Report 4762747-7 (Version None)
Quarter: 2005Q3

REPORT INFORMATION
  Report Type: 
  Country: None (occurrence: None)
  Receive Date: 20050907
  Receipt Date: 20050525
  Transmission Date: 20060218
  Serious: Yes (Death)
  Sender: FDA-Public Use
  Company Number: US-ROCHE-405973

PATIENT
  Age: 51 Year
  Sex: Male
  Weight: 88.5 kg

DRUGS (2)
  1. PEGASYS [Suspect]
     Indication: HEPATITIS C
     Dosage: DOSING AMOUNT: 180 MCG/0.5 ML. ROUTE OF ADMINSTRATION REPORTED AS INJECTION.
     Route: 050
     Dates: start: 20040602, end: 20041208
  2. COPEGUS [Suspect]
     Indication: HEPATITIS C
     Route: 048
     Dates: start: 20040602, end: 20041208

REACTIONS (2)
  - DEEP VEIN THROMBOSIS [None]
  - EMBOLISM [None]
